FAERS Safety Report 21819731 (Version 1)
Quarter: 2023Q1

REPORT INFORMATION
  Report Type: Report from Study
  Country: JP (occurrence: JP)
  Receive Date: 20230104
  Receipt Date: 20230104
  Transmission Date: 20230418
  Serious: Yes (Death)
  Sender: FDA-Public Use
  Company Number: JP-TAKEDA-2022TJP079069

PATIENT
  Age: 71 Year
  Sex: Male
  Weight: 52.2 kg

DRUGS (7)
  1. LEUPROLIDE ACETATE [Suspect]
     Active Substance: LEUPROLIDE ACETATE
     Indication: Prostate cancer
     Route: 030
     Dates: start: 20220927, end: 20220927
  2. LANSOPRAZOLE [Concomitant]
     Active Substance: LANSOPRAZOLE
     Indication: Chronic gastritis
     Route: 048
     Dates: start: 20221005
  3. ACETAMINOPHEN [Concomitant]
     Active Substance: ACETAMINOPHEN
     Indication: Abdominal discomfort
     Route: 048
     Dates: start: 20221025
  4. CRESTOR [Concomitant]
     Active Substance: ROSUVASTATIN CALCIUM
     Indication: Dyslipidaemia
     Route: 048
  5. AMITIZA [Concomitant]
     Active Substance: LUBIPROSTONE
     Indication: Constipation
     Route: 048
     Dates: start: 20220927
  6. ETIZOLAM [Concomitant]
     Active Substance: ETIZOLAM
     Indication: Insomnia
     Route: 048
  7. SILODOSIN [Concomitant]
     Active Substance: SILODOSIN
     Indication: Benign prostatic hyperplasia
     Route: 048

REACTIONS (1)
  - Depression [Fatal]

NARRATIVE: CASE EVENT DATE: 20221210
